FAERS Safety Report 8556927-2 (Version None)
Quarter: 2012Q3

REPORT INFORMATION
  Report Type: 
  Country: None (occurrence: None)
  Receive Date: 20120801
  Receipt Date: 20120723
  Transmission Date: 20120928
  Serious: Yes (Hospitalization)
  Sender: FDA-Public Use
  Company Number: FR-JNJFOC-20120712885

PATIENT
  Age: 45 Year
  Sex: Female

DRUGS (4)
  1. IMOVANE [Concomitant]
     Route: 065
  2. PROZAC [Concomitant]
     Route: 065
  3. LEVOTHYROXINE SODIUM [Concomitant]
     Route: 065
  4. REMICADE [Suspect]
     Indication: CROHN'S DISEASE
     Route: 042
     Dates: start: 20110726, end: 20120126

REACTIONS (1)
  - BREAST CANCER [None]
